FAERS Safety Report 16182645 (Version 2)
Quarter: 2019Q2

REPORT INFORMATION
  Report Type: Report from Study
  Country: US (occurrence: US)
  Receive Date: 20190411
  Receipt Date: 20190625
  Transmission Date: 20190711
  Serious: Yes (Hospitalization)
  Sender: FDA-Public Use
  Company Number: US-SA-2019SA096701

PATIENT
  Age: 49 Year
  Sex: Male

DRUGS (1)
  1. TERIFLUNOMIDE. [Suspect]
     Active Substance: TERIFLUNOMIDE
     Indication: MULTIPLE SCLEROSIS
     Dosage: 14 MG, QD
     Route: 048
     Dates: start: 20181220, end: 20190520

REACTIONS (1)
  - Penis injury [Unknown]

NARRATIVE: CASE EVENT DATE: 20190403
